FAERS Safety Report 8310515-1 (Version None)
Quarter: 2012Q2

REPORT INFORMATION
  Report Type: 
  Country: None (occurrence: None)
  Receive Date: 20120425
  Receipt Date: 20120416
  Transmission Date: 20120825
  Serious: Yes (Other)
  Sender: FDA-Public Use
  Company Number: DE-JNJFOC-20090906490

PATIENT
  Age: 34 Year
  Sex: Female
  Weight: 80 kg

DRUGS (1)
  1. REMICADE [Suspect]
     Indication: PSORIATIC ARTHROPATHY
     Route: 042
     Dates: start: 20090717, end: 20090717

REACTIONS (3)
  - BREECH PRESENTATION [None]
  - MATERNAL EXPOSURE DURING PREGNANCY [None]
  - MIGRAINE [None]
